FAERS Safety Report 14712750 (Version 6)
Quarter: 2018Q3

REPORT INFORMATION
  Report Type: Report from Study
  Country: CN (occurrence: CN)
  Receive Date: 20180404
  Receipt Date: 20180828
  Transmission Date: 20181010
  Serious: Yes (Hospitalization)
  Sender: FDA-Public Use
  Company Number: CN-ROCHE-2095785

PATIENT
  Age: 54 Year
  Sex: Female
  Weight: 43 kg

DRUGS (45)
  1. DIPHENHYDRAMINE HYDROCHLORIDE. [Concomitant]
     Active Substance: DIPHENHYDRAMINE HYDROCHLORIDE
     Dosage: PREVENT ALLERGIES
     Route: 065
     Dates: start: 20180301, end: 20180301
  2. GLUCOSE [Concomitant]
     Active Substance: DEXTROSE
     Route: 065
     Dates: start: 20180317, end: 20180325
  3. GLUCOSE [Concomitant]
     Active Substance: DEXTROSE
     Route: 065
     Dates: start: 20180228, end: 20180228
  4. CLOSTRIDIUM BUTYRICUM [Concomitant]
     Active Substance: CLOSTRIDIUM BUTYRICUM SPORES STRAIN M-55
     Dosage: REGULATES GASTROINTESTINAL FUNCTION
     Route: 065
     Dates: start: 20180327, end: 20180403
  5. CIMETIDINE [Concomitant]
     Active Substance: CIMETIDINE
     Dosage: PROTECT THE STOMACH
     Route: 065
     Dates: start: 20180228, end: 20180228
  6. VITAMIN B6 [Concomitant]
     Active Substance: PYRIDOXINE HYDROCHLORIDE
     Route: 065
     Dates: start: 20180228, end: 20180228
  7. TROPISETRON HYDROCHLORIDE [Concomitant]
     Active Substance: TROPISETRON HYDROCHLORIDE
     Indication: VOMITING
     Route: 065
     Dates: start: 20180228, end: 20180228
  8. DEXTRAN [Concomitant]
     Active Substance: DEXTRAN
     Dosage: DISPERSION TABLETS, ENRICH THE BLOOD
     Route: 065
     Dates: start: 20180211
  9. BEVACIZUMAB. [Suspect]
     Active Substance: BEVACIZUMAB
     Indication: OVARIAN CANCER
     Dosage: DATE OF MOST RECENT DOSE 690 MG OF BEVACIZUMAB PRIOR TO SAE ONSET ON 01/MAR/2018
     Route: 042
     Dates: start: 20180301
  10. OMEPRAZOLE SODIUM [Concomitant]
     Active Substance: OMEPRAZOLE SODIUM
     Route: 065
     Dates: start: 20180329, end: 20180329
  11. PIPERACILLIN [Concomitant]
     Active Substance: PIPERACILLIN
     Dosage: ANTI?INFECTION
     Route: 065
     Dates: start: 20180318, end: 20180319
  12. AMINO ACID [Concomitant]
     Active Substance: AMINO ACIDS
     Dosage: EXTRA NUTRITION
     Route: 065
     Dates: start: 20180408, end: 20180408
  13. DEXAMETHASONE SODIUM PHOSPHATE. [Concomitant]
     Active Substance: DEXAMETHASONE SODIUM PHOSPHATE
     Dosage: PREVENT ALLERGIES
     Route: 030
     Dates: start: 20180301, end: 20180301
  14. DIPHENHYDRAMINE HYDROCHLORIDE. [Concomitant]
     Active Substance: DIPHENHYDRAMINE HYDROCHLORIDE
     Dosage: PREVENT ALLERGIES
     Route: 065
     Dates: start: 20180301, end: 20180301
  15. DEXAMETHASONE ACETATE [Concomitant]
     Active Substance: DEXAMETHASONE ACETATE
     Dosage: PREVENT ALLERGIES
     Route: 065
     Dates: start: 20180228, end: 20180301
  16. MUCOPOLYSACCHARIDE POLYSULPHATE [Concomitant]
     Route: 065
     Dates: start: 20180228
  17. DEXAMETHASONE SODIUM PHOSPHATE. [Concomitant]
     Active Substance: DEXAMETHASONE SODIUM PHOSPHATE
     Indication: HYPERSENSITIVITY
     Route: 042
     Dates: start: 20180301, end: 20180301
  18. OMEPRAZOLE SODIUM [Concomitant]
     Active Substance: OMEPRAZOLE SODIUM
     Dosage: PROTECT THE STOMACH
     Route: 065
     Dates: start: 20180302, end: 20180302
  19. OMEPRAZOLE SODIUM [Concomitant]
     Active Substance: OMEPRAZOLE SODIUM
     Route: 065
     Dates: start: 20180317, end: 20180325
  20. POTASSIUM CHLORIDE. [Concomitant]
     Active Substance: POTASSIUM CHLORIDE
     Dosage: SUPPLEMENTARY ELECTROLYTE
     Route: 065
     Dates: start: 20180317, end: 20180325
  21. POTASSIUM CHLORIDE. [Concomitant]
     Active Substance: POTASSIUM CHLORIDE
     Route: 065
     Dates: start: 20180327, end: 20180327
  22. DEXAMETHASONE. [Concomitant]
     Active Substance: DEXAMETHASONE
     Dosage: PREVENT ALLERGIES
     Route: 042
     Dates: start: 20180410, end: 20180410
  23. BLINDED ATEZOLIZUMAB [Suspect]
     Active Substance: ATEZOLIZUMAB
     Indication: OVARIAN CANCER
     Dosage: DATE OF MOST RECENT DOSE OF ATEZOLIZUMAB/PLACEBO PRIOR TO SAE ONSET: 01/MAR/2018
     Route: 042
     Dates: start: 20180207
  24. CAFFEIC ACID [Concomitant]
     Active Substance: CAFFEIC ACID
     Route: 065
     Dates: start: 20180302, end: 20180302
  25. DIPHENHYDRAMINE HYDROCHLORIDE. [Concomitant]
     Active Substance: DIPHENHYDRAMINE HYDROCHLORIDE
     Dosage: PREVENT ALLERGIES
     Route: 065
     Dates: start: 20180228, end: 20180228
  26. METOCLOPRAMIDE DIHYDROCHLORIDE [Concomitant]
     Indication: VOMITING
     Dosage: STOP VOMITING
     Route: 065
     Dates: start: 20180410, end: 20180410
  27. LIDOCAINE HYDROCHLORIDE. [Concomitant]
     Active Substance: LIDOCAINE HYDROCHLORIDE
     Indication: ANAESTHESIA
     Route: 061
     Dates: start: 20180228, end: 20180228
  28. PACLITAXEL. [Suspect]
     Active Substance: PACLITAXEL
     Indication: OVARIAN CANCER
     Dosage: DATE OF MOST RECENT DOSE OF PACLITAXEL 240 MG PRIOR TO SAE ONSET 01/MAR/2018
     Route: 042
     Dates: start: 20180207
  29. DIPHENHYDRAMINE HYDROCHLORIDE. [Concomitant]
     Active Substance: DIPHENHYDRAMINE HYDROCHLORIDE
     Route: 065
     Dates: start: 20180410, end: 20180410
  30. HEPARIN SODIUM. [Concomitant]
     Active Substance: HEPARIN SODIUM
     Route: 065
     Dates: start: 20180302, end: 20180302
  31. PROMETHAZINE HYDROCHLORIDE. [Concomitant]
     Active Substance: PROMETHAZINE HYDROCHLORIDE
     Dosage: PREVENT ALLERGIES
     Route: 065
     Dates: start: 20180301, end: 20180301
  32. CARBOPLATIN. [Suspect]
     Active Substance: CARBOPLATIN
     Indication: OVARIAN CANCER
     Route: 042
     Dates: start: 20180207
  33. CAFFEIC ACID [Concomitant]
     Active Substance: CAFFEIC ACID
     Route: 065
     Dates: start: 20180227, end: 20180304
  34. VITAMIN C [Concomitant]
     Active Substance: ASCORBIC ACID
     Route: 065
     Dates: start: 20180327, end: 20180327
  35. VITAMIN C [Concomitant]
     Active Substance: ASCORBIC ACID
     Route: 065
     Dates: start: 20180228, end: 20180228
  36. GLUCOSE [Concomitant]
     Active Substance: DEXTROSE
     Route: 065
     Dates: start: 20180327, end: 20180327
  37. POTASSIUM CHLORIDE. [Concomitant]
     Active Substance: POTASSIUM CHLORIDE
     Dosage: SUPPLEMENTARY ELECTROLYTE
     Route: 065
     Dates: start: 20180228, end: 20180228
  38. CIMETIDINE [Concomitant]
     Active Substance: CIMETIDINE
     Dosage: PROTECT THE STOMACH
     Route: 065
     Dates: start: 20180410, end: 20180410
  39. VITAMIN B6 [Concomitant]
     Active Substance: PYRIDOXINE HYDROCHLORIDE
     Dosage: VITAMIN SUPPLEMENTATION
     Route: 065
     Dates: start: 20180302, end: 20180302
  40. POVIDONE?IODINE. [Concomitant]
     Active Substance: POVIDONE-IODINE
     Dosage: ASEPTIC
     Route: 065
     Dates: start: 20180209
  41. COENZYME Q10 [Concomitant]
     Active Substance: UBIDECARENONE
     Dosage: COENZYME Q10 SODIUM CHLORIDE INJECTION
     Route: 065
     Dates: start: 20180228, end: 20180228
  42. DIYUSHENGBAI [Concomitant]
  43. OMEPRAZOLE SODIUM [Concomitant]
     Active Substance: OMEPRAZOLE SODIUM
     Route: 065
     Dates: start: 20180327, end: 20180327
  44. OMEPRAZOLE SODIUM [Concomitant]
     Active Substance: OMEPRAZOLE SODIUM
     Dosage: PROTECT THE STOMACH
     Route: 065
     Dates: start: 20180228, end: 20180228
  45. VITAMIN C [Concomitant]
     Active Substance: ASCORBIC ACID
     Dosage: VITAMIN SUPPLEMENTATION
     Route: 065
     Dates: start: 20180317, end: 20180325

REACTIONS (1)
  - Intestinal obstruction [Recovered/Resolved]

NARRATIVE: CASE EVENT DATE: 20180317
